FAERS Safety Report 7315506-5 (Version None)
Quarter: 2011Q1

REPORT INFORMATION
  Report Type: 
  Country: None (occurrence: None)
  Receive Date: 20110218
  Receipt Date: 20110218
  Transmission Date: 20110831
  Serious: Yes (Hospitalization)
  Sender: FDA-Public Use
  Company Number: None

PATIENT
  Age: 70 Year
  Sex: Male
  Weight: 118 kg

DRUGS (5)
  1. BC POWDER [Suspect]
     Indication: PAIN
     Dosage: DAILY PO
     Route: 048
  2. SPIRIVA [Concomitant]
  3. METOPROLOL SUCCINATE EXTENDED RELEASE [Concomitant]
  4. ADVIL /IBUPROFEN [Suspect]
     Indication: PAIN
     Dosage: PRN PO
     Route: 048
  5. RAMIPRIL [Concomitant]

REACTIONS (3)
  - COLONIC POLYP [None]
  - MALLORY-WEISS SYNDROME [None]
  - LARGE INTESTINAL HAEMORRHAGE [None]
